FAERS Safety Report 5201157-5 (Version None)
Quarter: 2007Q1

REPORT INFORMATION
  Report Type: 
  Country: None (occurrence: None)
  Receive Date: 20070108
  Receipt Date: 20061226
  Transmission Date: 20070707
  Serious: Yes (Hospitalization)
  Sender: FDA-Public Use
  Company Number: US-ELI_LILLY_AND_COMPANY-US200606001326

PATIENT
  Age: 50 Year
  Sex: Female

DRUGS (4)
  1. STRATTERA [Suspect]
     Dosage: 40 MG, UNK
     Route: 048
     Dates: start: 20060101, end: 20060501
  2. ZOLOFT [Concomitant]
  3. THYROID TAB [Concomitant]
  4. WARFARIN SODIUM [Concomitant]
     Dates: start: 20060501

REACTIONS (2)
  - DEEP VEIN THROMBOSIS [None]
  - PULMONARY EMBOLISM [None]
